FAERS Safety Report 7318332-6 (Version None)
Quarter: 2011Q1

REPORT INFORMATION
  Report Type: 
  Country: None (occurrence: None)
  Receive Date: 20110228
  Receipt Date: 20110214
  Transmission Date: 20110831
  Serious: Yes (Death, Other)
  Sender: FDA-Public Use
  Company Number: NO-AMGEN-NORSP2011009449

PATIENT
  Age: 69 Year
  Sex: Male

DRUGS (5)
  1. PREDNISOLON                        /00016201/ [Suspect]
     Indication: RHEUMATOID ARTHRITIS
     Dosage: 5 MG, 1X/DAY
  2. BURINEX [Concomitant]
     Dosage: 1 MG, AS NEEDED
  3. ARTHROTEC [Concomitant]
     Indication: RHEUMATOID ARTHRITIS
     Dosage: 1 DF, 3X/DAY
  4. CAVERJECT AQ [Concomitant]
     Indication: ERECTILE DYSFUNCTION
     Dosage: AS NECESSARY
  5. ENBREL [Suspect]
     Indication: RHEUMATOID ARTHRITIS
     Dosage: 50 MG, WEEKLY
     Dates: start: 20070701

REACTIONS (7)
  - MYOCARDIAL INFARCTION [None]
  - CARDIAC ARREST [None]
  - HYPOTENSION [None]
  - SEPTIC SHOCK [None]
  - VENTRICULAR FIBRILLATION [None]
  - PNEUMONIA [None]
  - MULTI-ORGAN FAILURE [None]
